FAERS Safety Report 8534626-0 (Version None)
Quarter: 2012Q3

REPORT INFORMATION
  Report Type: 
  Country: None (occurrence: None)
  Receive Date: 20120724
  Receipt Date: 20120710
  Transmission Date: 20120928
  Serious: Yes (Hospitalization)
  Sender: FDA-Public Use
  Company Number: US-ENDO PHARMACEUTICALS INC.-HCDA20120055

PATIENT
  Sex: Female

DRUGS (2)
  1. HYDROCODONE/ACETAMINOPHEN 10MG/325MG [Suspect]
     Indication: BACK PAIN
     Route: 048
     Dates: start: 20120501, end: 20120601
  2. ASPIRIN [Concomitant]
     Indication: ANTICOAGULANT THERAPY
     Dosage: UNK
     Route: 048

REACTIONS (6)
  - NAUSEA [None]
  - ASTHENIA [None]
  - EPIGASTRIC DISCOMFORT [None]
  - CHEST PAIN [None]
  - VOMITING [None]
  - VENTRICULAR EXTRASYSTOLES [None]
